FAERS Safety Report 5008080-X (Version None)
Quarter: 2006Q1

REPORT INFORMATION
  Report Type: 
  Country: None (occurrence: None)
  Receive Date: 20060329
  Receipt Date: 20060103
  Transmission Date: 20060701
  Serious: Yes (Other)
  Sender: FDA-Public Use
  Company Number: A03200600067

PATIENT
  Age: 46 Year
  Sex: Female

DRUGS (1)
  1. AMBIEN [Suspect]
     Dosage: 12.5 MG HS - ORAL
     Route: 048
     Dates: start: 20050101, end: 20050101

REACTIONS (3)
  - DEPRESSIVE SYMPTOM [None]
  - MANIA [None]
  - NIGHTMARE [None]
